FAERS Safety Report 7983623-2 (Version None)
Quarter: 2011Q4

REPORT INFORMATION
  Report Type: 
  Country: None (occurrence: None)
  Receive Date: 20111215
  Receipt Date: 20111212
  Transmission Date: 20120403
  Serious: Yes (Hospitalization, Other)
  Sender: FDA-Public Use
  Company Number: PHHY2010DE06819

PATIENT
  Sex: Female
  Weight: 53 kg

DRUGS (5)
  1. FENTANYL [Concomitant]
     Indication: PAIN
     Route: 062
  2. VITAMIN D [Concomitant]
     Indication: OSTEOPOROSIS
  3. ANALGESICS [Concomitant]
  4. ZOLEDRONOC ACID [Suspect]
     Dosage: 5 MG, ONCE YEARLY
     Route: 042
     Dates: start: 20091202, end: 20091202
  5. CALCIUM [Concomitant]
     Indication: OSTEOPOROSIS

REACTIONS (5)
  - NAUSEA [None]
  - TREMOR [None]
  - MIOSIS [None]
  - DIZZINESS [None]
  - AKATHISIA [None]
